FAERS Safety Report 25939992 (Version 2)
Quarter: 2025Q4

REPORT INFORMATION
  Report Type: Report from Study
  Country: IN (occurrence: IN)
  Receive Date: 20251020
  Receipt Date: 20251119
  Transmission Date: 20260118
  Serious: Yes (Other)
  Sender: NOVARTIS
  Company Number: IN-002147023-NVSC2023IN044637

PATIENT
  Age: 50 Year
  Sex: Female

DRUGS (6)
  1. RIBOCICLIB [Suspect]
     Active Substance: RIBOCICLIB
     Indication: Hormone receptor positive HER2 negative breast cancer
     Dosage: 200 MG, TID (200 MG 1 TAB 3 TIMES FOR 21 DAYS) (MORNING, AFTERNOON AND EVENING TIME)
     Route: 048
     Dates: start: 20201101
  2. RIBOCICLIB [Suspect]
     Active Substance: RIBOCICLIB
     Indication: Breast cancer metastatic
     Dosage: UNK
     Route: 048
     Dates: start: 20201120
  3. RIBOCICLIB [Suspect]
     Active Substance: RIBOCICLIB
     Dosage: 600 MG, QD (FOR 21 DAYS AND 7 DAYS OFF)
     Route: 065
     Dates: start: 20220921
  4. RIBOCICLIB [Suspect]
     Active Substance: RIBOCICLIB
     Dosage: 600 MG, QD (FOR 21 DAYS AND 7 DAYS OFF)
     Route: 048
     Dates: start: 20230321
  5. RIBOCICLIB [Suspect]
     Active Substance: RIBOCICLIB
     Dosage: 600 MG, QD
     Route: 048
  6. LEVOTHYROXINE [Concomitant]
     Active Substance: LEVOTHYROXINE
     Indication: Hypothyroidism
     Dosage: 100 UG, QD
     Route: 065

REACTIONS (38)
  - Breast cancer recurrent [Unknown]
  - Pyrexia [Unknown]
  - Pulmonary mass [Unknown]
  - Therapy partial responder [Unknown]
  - Haemoglobin abnormal [Unknown]
  - White blood cell count abnormal [Unknown]
  - Neutrophil count abnormal [Unknown]
  - Platelet count abnormal [Unknown]
  - Blood glucose abnormal [Unknown]
  - Glycosylated haemoglobin abnormal [Unknown]
  - Blood cholesterol abnormal [Unknown]
  - Blood triglycerides abnormal [Unknown]
  - High density lipoprotein abnormal [Unknown]
  - Blood bilirubin abnormal [Unknown]
  - Aspartate aminotransferase abnormal [Unknown]
  - Alanine aminotransferase abnormal [Unknown]
  - Blood alkaline phosphatase abnormal [Unknown]
  - Protein total abnormal [Unknown]
  - Blood albumin abnormal [Unknown]
  - Blood urea abnormal [Unknown]
  - Blood creatinine abnormal [Unknown]
  - Blood calcium abnormal [Unknown]
  - Blood uric acid abnormal [Unknown]
  - Blood sodium abnormal [Unknown]
  - Blood potassium abnormal [Unknown]
  - Blood thyroid stimulating hormone abnormal [Unknown]
  - Vitamin D abnormal [Unknown]
  - Vitamin B12 abnormal [Unknown]
  - Blood phosphorus abnormal [Unknown]
  - Glomerular filtration rate abnormal [Unknown]
  - Pleural effusion [Recovered/Resolved]
  - White blood cells urine positive [Unknown]
  - Bone lesion [Unknown]
  - Lymphocyte count abnormal [Unknown]
  - Eosinophil count abnormal [Unknown]
  - Red blood cell count abnormal [Unknown]
  - Carbohydrate antigen 15-3 increased [Unknown]
  - Off label use [Unknown]

NARRATIVE: CASE EVENT DATE: 20220901
